FAERS Safety Report 11814010 (Version 1)
Quarter: 2015Q4

REPORT INFORMATION
  Report Type: Spontaneous
  Country: CN (occurrence: CN)
  Receive Date: 20151209
  Receipt Date: 20151209
  Transmission Date: 20160305
  Serious: Yes (Other)
  Sender: FDA-Public Use
  Company Number: CN-ASTRAZENECA-2015SF22511

PATIENT
  Age: 14268 Day
  Sex: Female
  Weight: 57 kg

DRUGS (6)
  1. QUETIAPINE FUMARATE. [Suspect]
     Active Substance: QUETIAPINE FUMARATE
     Indication: BIPOLAR DISORDER
     Route: 048
     Dates: start: 20150413, end: 20150423
  2. BENZHEXOL HYDROCHLORIDE [Suspect]
     Active Substance: TRIHEXYPHENIDYL HYDROCHLORIDE
     Indication: EXTRAPYRAMIDAL DISORDER
     Route: 048
     Dates: start: 20150410, end: 20150423
  3. OLANZAPINE. [Concomitant]
     Active Substance: OLANZAPINE
     Indication: HYPOMANIA
     Route: 048
     Dates: start: 20150303, end: 20150427
  4. QUETIAPINE FUMARATE. [Suspect]
     Active Substance: QUETIAPINE FUMARATE
     Indication: HYPOMANIA
     Route: 048
     Dates: start: 20150413, end: 20150423
  5. OLANZAPINE. [Concomitant]
     Active Substance: OLANZAPINE
     Indication: BIPOLAR DISORDER
     Route: 048
     Dates: start: 20150303, end: 20150427
  6. ZOLPIDEM TARTRATE. [Concomitant]
     Active Substance: ZOLPIDEM TARTRATE
     Indication: SLEEP DISORDER
     Route: 048
     Dates: start: 20150410, end: 20150427

REACTIONS (7)
  - Tachycardia [Recovering/Resolving]
  - Erythema multiforme [Recovering/Resolving]
  - Acquired epidermolysis bullosa [Recovering/Resolving]
  - Wound infection [Unknown]
  - Urticaria [Unknown]
  - Dyspnoea [Recovering/Resolving]
  - Pyrexia [Recovered/Resolved]

NARRATIVE: CASE EVENT DATE: 20150422
